FAERS Safety Report 8390565 (Version 3)
Quarter: 2013Q1

REPORT INFORMATION
  Report Type: Report from Study
  Country: US (occurrence: US)
  Receive Date: 20120206
  Receipt Date: 20130117
  Transmission Date: 20140127
  Serious: Yes (Other)
  Sender: FDA-Public Use
  Company Number: US-BIOGENIDEC-2012BI003498

PATIENT
  Age: 2 Year
  Sex: Male

DRUGS (1)
  1. TYSABRI [Suspect]
     Indication: MATERNAL EXPOSURE TIMING UNSPECIFIED
     Route: 064
     Dates: start: 20080822, end: 20080917

REACTIONS (1)
  - Glioma [Not Recovered/Not Resolved]
